FAERS Safety Report 4788460-8 (Version None)
Quarter: 2005Q4

REPORT INFORMATION
  Report Type: 
  Country: None (occurrence: None)
  Receive Date: 20051005
  Receipt Date: 20051005
  Transmission Date: 20060501
  Serious: Yes (Hospitalization)
  Sender: FDA-Public Use
  Company Number: None

PATIENT
  Age: 75 Year
  Sex: Male

DRUGS (7)
  1. NPH INSULIN [Suspect]
     Indication: DIABETES MELLITUS NON-INSULIN-DEPENDENT
     Dosage: NPH 22UAM, 5U PM
  2. REGULAR INSULIN [Suspect]
     Dosage: R 8UAM, 5UPM
  3. WARFARIN SODIUM [Concomitant]
  4. ATORVASTATIN [Concomitant]
  5. ENALAPRIL [Concomitant]
  6. INDAPAMIDE [Concomitant]
  7. DONEPEZIL HCL [Concomitant]

REACTIONS (7)
  - ANION GAP INCREASED [None]
  - BLOOD GLUCOSE INCREASED [None]
  - DECREASED APPETITE [None]
  - DRUG DOSE OMISSION [None]
  - LETHARGY [None]
  - POLYDIPSIA [None]
  - POLYURIA [None]
